FAERS Safety Report 6020727-8 (Version None)
Quarter: 2008Q4

REPORT INFORMATION
  Report Type: 
  Country: None (occurrence: None)
  Receive Date: 20081222
  Receipt Date: 20081215
  Transmission Date: 20090506
  Serious: Yes (Hospitalization)
  Sender: FDA-Public Use
  Company Number: LTI2008A00332

PATIENT
  Age: 79 Year
  Sex: Male

DRUGS (11)
  1. LANSOPRAZOLE [Suspect]
     Indication: HIATUS HERNIA
     Dosage: 30 MG (30 MG), ORAL, 15 MG (15 MG, 1 IN 1 D) ORAL
     Route: 048
     Dates: start: 20080301, end: 20080416
  2. LANSOPRAZOLE [Suspect]
     Indication: HIATUS HERNIA
     Dosage: 30 MG (30 MG), ORAL, 15 MG (15 MG, 1 IN 1 D) ORAL
     Route: 048
     Dates: start: 20080301
  3. LANSOPRAZOLE [Suspect]
     Indication: HIATUS HERNIA
     Dosage: 30 MG (30 MG), ORAL, 15 MG (15 MG, 1 IN 1 D) ORAL
     Route: 048
     Dates: start: 20080417
  4. MODOPAR (MADOPAR /00349201/) (TABLETS) [Suspect]
     Indication: PARKINSON'S DISEASE
     Dosage: 3 TAB. (1 TAB. 3 IN 1 D), ORAL
     Route: 048
     Dates: start: 20080227, end: 20081018
  5. MODOPAR (MADOPAR /00349201/) (TABLETS) [Suspect]
     Indication: PARKINSON'S DISEASE
     Dosage: 3 TAB. (1 TAB. 3 IN 1 D), ORAL
     Route: 048
     Dates: start: 20080227
  6. EFFEXOR [Suspect]
     Indication: DEPRESSION
     Dosage: 37.5 MG (37.5 MG, 1 IN 1 D), ORAL
     Route: 048
     Dates: start: 20080301, end: 20081018
  7. ALLOPURINOL [Concomitant]
  8. LASILIX (FUROSEMIDE) (TABLETS) [Concomitant]
  9. KARDEGIC (ACETYLSALICYLATE LYSINE) (POWDER) [Concomitant]
  10. APROVEL (IRBESARTAN) (TABLETS) [Concomitant]
  11. FORADIL (FORMOTEROL FUMARATE) (SOLUTION) [Concomitant]

REACTIONS (2)
  - CHILLS [None]
  - ECZEMA [None]
